FAERS Safety Report 11880653 (Version 1)
Quarter: 2015Q4

REPORT INFORMATION
  Report Type: Spontaneous
  Country: IT (occurrence: IT)
  Receive Date: 20151230
  Receipt Date: 20151230
  Transmission Date: 20160305
  Serious: Yes (Hospitalization)
  Sender: FDA-Public Use
  Company Number: IT-KADMON PHARMACEUTICALS, LLC-KAD201512-004659

PATIENT
  Age: 70 Year
  Sex: Female

DRUGS (3)
  1. EXVIERA TABLET [Suspect]
     Active Substance: DASABUVIR
     Route: 048
  2. RIBAVIRIN. [Suspect]
     Active Substance: RIBAVIRIN
     Dosage: TABLET
     Route: 048
  3. VIEKIRAX TABLET [Suspect]
     Active Substance: OMBITASVIR\PARITAPREVIR\RITONAVIR
     Route: 048

REACTIONS (2)
  - Diplopia [Unknown]
  - Strabismus [Unknown]
